FAERS Safety Report 9527943 (Version 1)
Quarter: 2013Q1

REPORT INFORMATION
  Report Type: Spontaneous
  Country: US (occurrence: None)
  Receive Date: 20130314
  Receipt Date: 20130314
  Transmission Date: 20140127
  Serious: Yes (Other)
  Sender: FDA-Public Use
  Company Number: 1212USA000481

PATIENT
  Age: 55 Year
  Sex: Female

DRUGS (3)
  1. PEGINTRON (PEGINTERFERON ALFA-2B) POWDER FOR INJECTION [Suspect]
     Indication: HEPATITIS C
     Route: 058
     Dates: start: 20120316, end: 20120921
  2. REBETOL [Suspect]
     Route: 048
     Dates: start: 20120316, end: 20120928
  3. VICTRELIS [Suspect]
     Indication: HEPATITIS C
     Route: 048
     Dates: start: 20120413, end: 20120928

REACTIONS (5)
  - Leukopenia [None]
  - Mood altered [None]
  - Neutrophil count decreased [None]
  - Anaemia [None]
  - Arthropathy [None]
